FAERS Safety Report 9715107 (Version 3)
Quarter: 2013Q4

REPORT INFORMATION
  Report Type: Spontaneous
  Country: US (occurrence: US)
  Receive Date: 20131126
  Receipt Date: 20131206
  Transmission Date: 20140711
  Serious: Yes (Hospitalization)
  Sender: FDA-Public Use
  Company Number: US-B.I. PHARMACEUTICALS,INC./RIDGEFIELD-2013-BI-16833BP

PATIENT
  Age: 49 Year
  Sex: Female
  Weight: 95.25 kg

DRUGS (9)
  1. PRADAXA [Suspect]
     Indication: ANTICOAGULANT THERAPY
     Dosage: 300 MG
     Route: 048
     Dates: start: 20110826, end: 20120117
  2. PRADAXA [Suspect]
     Indication: ATRIAL FIBRILLATION
  3. DIGOXIN [Concomitant]
     Dates: start: 20110721, end: 20120201
  4. METHIMAZOLE [Concomitant]
     Dates: start: 20110721, end: 20120201
  5. METOPROLOL [Concomitant]
     Dates: start: 20110721, end: 20120201
  6. PREDNISONE [Concomitant]
  7. HYDROCODONE [Concomitant]
  8. DOXYCYCLINE [Concomitant]
  9. IRON [Concomitant]

REACTIONS (2)
  - Menorrhagia [Unknown]
  - Haemorrhagic anaemia [Unknown]
